FAERS Safety Report 7734785-3 (Version None)
Quarter: 2011Q3

REPORT INFORMATION
  Report Type: 
  Country: None (occurrence: None)
  Receive Date: 20110907
  Receipt Date: 20110829
  Transmission Date: 20111222
  Serious: Yes (Other)
  Sender: FDA-Public Use
  Company Number: US-ASTRAZENECA-2011SE29019

PATIENT
  Age: 64 Year
  Sex: Male
  Weight: 93.4 kg

DRUGS (3)
  1. PLAVIX [Interacting]
     Route: 065
  2. NEXIUM [Suspect]
     Route: 048
  3. INSULIN [Concomitant]

REACTIONS (4)
  - EJECTION FRACTION ABNORMAL [None]
  - DRUG EFFECT DECREASED [None]
  - CORONARY ARTERY OCCLUSION [None]
  - DRUG INTERACTION [None]
